FAERS Safety Report 5107320-6 (Version None)
Quarter: 2006Q3

REPORT INFORMATION
  Report Type: 
  Country: None (occurrence: None)
  Receive Date: 20060914
  Receipt Date: 20060905
  Transmission Date: 20061208
  Serious: Yes (Hospitalization, Other)
  Sender: FDA-Public Use
  Company Number: 2006026078

PATIENT
  Age: 61 Year
  Sex: Male

DRUGS (2)
  1. NEURONTIN [Suspect]
     Indication: BIPOLAR DISORDER
  2. DILANTIN [Suspect]
     Indication: CONVULSION

REACTIONS (26)
  - APHASIA [None]
  - ASTHENIA [None]
  - ATELECTASIS [None]
  - COGNITIVE DISORDER [None]
  - COMMUNICATION DISORDER [None]
  - DECUBITUS ULCER [None]
  - DEEP VEIN THROMBOSIS [None]
  - DRUG INEFFECTIVE [None]
  - DYSPHONIA [None]
  - FATIGUE [None]
  - GUN SHOT WOUND [None]
  - HAEMODIALYSIS [None]
  - HYPERKALAEMIA [None]
  - LOSS OF CONSCIOUSNESS [None]
  - MEMORY IMPAIRMENT [None]
  - PNEUMONIA [None]
  - POST-TRAUMATIC EPILEPSY [None]
  - PYREXIA [None]
  - RENAL FAILURE ACUTE [None]
  - RENAL TUBULAR NECROSIS [None]
  - RESPIRATORY FAILURE [None]
  - RHABDOMYOLYSIS [None]
  - SUBARACHNOID HAEMORRHAGE [None]
  - SUICIDE ATTEMPT [None]
  - THERAPEUTIC AGENT TOXICITY [None]
  - TRAUMATIC BRAIN INJURY [None]
